FAERS Safety Report 9203449 (Version 3)
Quarter: 2013Q2

REPORT INFORMATION
  Report Type: Spontaneous
  Country: US (occurrence: US)
  Receive Date: 20130402
  Receipt Date: 20130516
  Transmission Date: 20140414
  Serious: Yes (Hospitalization)
  Sender: FDA-Public Use
  Company Number: US-PFIZER INC-2013099743

PATIENT
  Age: 51 Year
  Sex: Male
  Weight: 90.7 kg

DRUGS (17)
  1. SUTENT [Suspect]
     Indication: RENAL CELL CARCINOMA
     Dosage: 50 MG, 1X/DAY
     Route: 048
     Dates: start: 20130326
  2. DILAUDID [Concomitant]
     Dosage: UNK
  3. LOPRESSOR [Concomitant]
     Dosage: UNK
  4. CALCIUM ACETATE [Concomitant]
     Dosage: UNK
  5. COLACE [Concomitant]
     Dosage: UNK
  6. MIRALAX [Concomitant]
     Dosage: UNK
  7. PRILOSEC [Concomitant]
     Dosage: UNK
  8. PROCRIT [Concomitant]
     Dosage: UNK
  9. SENOKOT [Concomitant]
     Dosage: UNK
  10. VANCOMYCIN [Concomitant]
     Dosage: UNK
  11. CARDIZEM [Concomitant]
     Dosage: UNK
  12. FENTANYL [Concomitant]
     Dosage: UNK
  13. VIBRAMYCIN [Concomitant]
     Dosage: UNK
  14. FOLIC ACID [Concomitant]
     Dosage: UNK
  15. HYDROXYUREA [Concomitant]
     Dosage: UNK
  16. NEPHRO [Concomitant]
     Dosage: UNK
  17. ALLOPURINOL [Concomitant]
     Dosage: UNK

REACTIONS (5)
  - Haemoglobin decreased [Unknown]
  - Blood urine present [Unknown]
  - Bladder cyst [Unknown]
  - Fatigue [Unknown]
  - Depression [Unknown]
